FAERS Safety Report 9614593 (Version 1)
Quarter: 2013Q4

REPORT INFORMATION
  Report Type: Spontaneous
  Country: US (occurrence: None)
  Receive Date: 20131009
  Receipt Date: 20131009
  Transmission Date: 20140711
  Serious: Yes (Life-Threatening, Hospitalization)
  Sender: FDA-Public Use
  Company Number: None

PATIENT
  Age: 79 Year
  Sex: Female
  Weight: 69.4 kg

DRUGS (4)
  1. MEDROL [Suspect]
     Indication: ARTHRALGIA
     Dosage: 4 MG DOSE PK  21 TABS/ 6 DAYS
     Dates: start: 20130904, end: 20130909
  2. MEDROL [Suspect]
     Indication: PAIN IN EXTREMITY
     Dosage: 4 MG DOSE PK  21 TABS/ 6 DAYS
     Dates: start: 20130904, end: 20130909
  3. FLEXERIL [Suspect]
     Indication: ARTHRALGIA
     Dosage: 10 MG   1 TAB / 2X  DAILY
     Dates: start: 20130904, end: 20130910
  4. FLEXERIL [Suspect]
     Indication: PAIN IN EXTREMITY
     Dosage: 10 MG   1 TAB / 2X  DAILY
     Dates: start: 20130904, end: 20130910

REACTIONS (6)
  - Asthenia [None]
  - Loss of consciousness [None]
  - Head injury [None]
  - Limb injury [None]
  - Joint injury [None]
  - Fracture [None]
